APPROVED DRUG PRODUCT: NEVIRAPINE
Active Ingredient: NEVIRAPINE
Strength: 200MG
Dosage Form/Route: TABLET;ORAL
Application: A090688 | Product #001 | TE Code: AB
Applicant: MACLEODS PHARMACEUTICALS LTD
Approved: Jan 14, 2019 | RLD: No | RS: Yes | Type: RX